FAERS Safety Report 19623136 (Version 1)
Quarter: 2021Q3

REPORT INFORMATION
  Report Type: Report from Study
  Country: BR (occurrence: BR)
  Receive Date: 20210728
  Receipt Date: 20210728
  Transmission Date: 20211014
  Serious: Yes (Death, Hospitalization, Other)
  Sender: FDA-Public Use
  Company Number: NVSC2021BR167934

PATIENT
  Age: 55 Year
  Sex: Female

DRUGS (4)
  1. DABRAFENIB [Suspect]
     Active Substance: DABRAFENIB
     Indication: NEOPLASM MALIGNANT
     Dosage: UNK UNK, BID
     Route: 065
     Dates: start: 20210125
  2. TRAMETINIB [Suspect]
     Active Substance: TRAMETINIB
     Indication: BRAF GENE MUTATION
     Dosage: UNK, QD
     Route: 065
     Dates: start: 20200630, end: 20201128
  3. TRAMETINIB [Suspect]
     Active Substance: TRAMETINIB
     Indication: NEOPLASM MALIGNANT
     Dosage: UNK
     Route: 065
     Dates: start: 20210125
  4. DABRAFENIB [Suspect]
     Active Substance: DABRAFENIB
     Indication: BRAF GENE MUTATION
     Dosage: UNK, BID
     Route: 065
     Dates: start: 20200630, end: 20201128

REACTIONS (6)
  - Immune-mediated enterocolitis [Recovering/Resolving]
  - Abnormal behaviour [Unknown]
  - Nervous system disorder [Unknown]
  - Condition aggravated [Fatal]
  - Oedema [Unknown]
  - Central nervous system lesion [Unknown]

NARRATIVE: CASE EVENT DATE: 20200630
